FAERS Safety Report 10033304 (Version 1)
Quarter: 2014Q1

REPORT INFORMATION
  Report Type: Spontaneous
  Country: US (occurrence: US)
  Receive Date: 20140324
  Receipt Date: 20140324
  Transmission Date: 20141002
  Serious: Yes (Death)
  Sender: FDA-Public Use
  Company Number: US-ROCHE-1370979

PATIENT
  Age: 74 Year
  Sex: Female

DRUGS (6)
  1. XELODA [Suspect]
     Indication: BREAST CANCER FEMALE
     Route: 048
     Dates: start: 20131220, end: 20140311
  2. CELEBREX [Concomitant]
  3. SIMVASTATIN [Concomitant]
  4. ZOCOR [Concomitant]
  5. FOLIC ACID [Concomitant]
  6. ARAVA [Concomitant]

REACTIONS (1)
  - Death [Fatal]
